FAERS Safety Report 8572841-0 (Version None)
Quarter: 2012Q2

REPORT INFORMATION
  Report Type: 
  Country: None (occurrence: None)
  Receive Date: 20120420
  Receipt Date: 20120420
  Transmission Date: 20120825
  Serious: Yes (Other)
  Sender: FDA-Public Use
  Company Number: ALL1-2011-02553

PATIENT
  Age: 20 Year
  Sex: Male
  Weight: 87.5 kg

DRUGS (4)
  1. . [Concomitant]
  2. VYVANSE [Suspect]
     Indication: ATTENTION DEFICIT/HYPERACTIVITY DISORDER
     Dosage: 30 MG, 1X/DAY:QD, ORAL ; 70 MG, 1X/DAY: QD, ORAL ; VYVANSE REGIMEN # 3 50 MG, 1X/DAY:QD, ORAL
     Route: 048
     Dates: start: 20080101
  3. VYVANSE [Suspect]
     Indication: ATTENTION DEFICIT/HYPERACTIVITY DISORDER
     Dosage: 30 MG, 1X/DAY:QD, ORAL ; 70 MG, 1X/DAY: QD, ORAL ; VYVANSE REGIMEN # 3 50 MG, 1X/DAY:QD, ORAL
     Route: 048
     Dates: end: 20110101
  4. VYVANSE [Suspect]
     Indication: ATTENTION DEFICIT/HYPERACTIVITY DISORDER
     Dosage: 30 MG, 1X/DAY:QD, ORAL ; 70 MG, 1X/DAY: QD, ORAL ; VYVANSE REGIMEN # 3 50 MG, 1X/DAY:QD, ORAL
     Route: 048
     Dates: start: 20110101

REACTIONS (7)
  - ADVERSE EVENT [None]
  - DRUG INEFFECTIVE [None]
  - DEPRESSION [None]
  - SOCIAL PHOBIA [None]
  - CONDITION AGGRAVATED [None]
  - IMPULSIVE BEHAVIOUR [None]
  - DISTURBANCE IN ATTENTION [None]
